FAERS Safety Report 17604984 (Version 1)
Quarter: 2020Q1

REPORT INFORMATION
  Report Type: Spontaneous
  Country: US (occurrence: US)
  Receive Date: 20200331
  Receipt Date: 20200331
  Transmission Date: 20200409
  Serious: Yes (Other)
  Sender: FDA-Public Use
  Company Number: None

PATIENT
  Sex: Female

DRUGS (1)
  1. IMDUR [Suspect]
     Active Substance: ISOSORBIDE MONONITRATE

REACTIONS (3)
  - Headache [None]
  - Flushing [None]
  - Palpitations [None]
